FAERS Safety Report 9003190 (Version 2)
Quarter: 2013Q3

REPORT INFORMATION
  Report Type: Spontaneous
  Country: IL (occurrence: IL)
  Receive Date: 20130108
  Receipt Date: 20130905
  Transmission Date: 20140515
  Serious: Yes (Other)
  Sender: FDA-Public Use
  Company Number: IL-VERTEX PHARMACEUTICALS INC.-2013-000339

PATIENT
  Age: 40 Year
  Sex: Female

DRUGS (2)
  1. INCIVO [Suspect]
     Indication: PRODUCT USED FOR UNKNOWN INDICATION
     Dosage: DOSAGE FORM: TABLET
     Route: 048
     Dates: start: 2012
  2. RIBAVIRIN [Suspect]
     Indication: PRODUCT USED FOR UNKNOWN INDICATION
     Dosage: DOSAGE FORM: UNKNOWN, DOSE DECREASED TO 800 (UNITS UNSPECIFIED)
     Route: 065

REACTIONS (4)
  - Abasia [Unknown]
  - Oedema peripheral [Unknown]
  - Anaemia [Unknown]
  - Rash [Not Recovered/Not Resolved]
